FAERS Safety Report 7643752-X (Version None)
Quarter: 2011Q3

REPORT INFORMATION
  Report Type: 
  Country: None (occurrence: None)
  Receive Date: 20110722
  Receipt Date: 20110709
  Transmission Date: 20111222
  Serious: Yes (Other)
  Sender: FDA-Public Use
  Company Number: 2011AP001449

PATIENT
  Age: 30 Year
  Sex: Male

DRUGS (1)
  1. LITHIUM CARBONATE [Suspect]
     Indication: BIPOLAR DISORDER
     Dosage: 300 MG;AM; 600 MG; PM
     Route: 048

REACTIONS (2)
  - HYPERTHYROIDISM [None]
  - THYROIDITIS SUBACUTE [None]
